FAERS Safety Report 4502376-3 (Version None)
Quarter: 2004Q4

REPORT INFORMATION
  Report Type: 
  Country: None (occurrence: None)
  Receive Date: 20041110
  Receipt Date: 20041029
  Transmission Date: 20050328
  Serious: Yes (Disabling)
  Sender: FDA-Public Use
  Company Number: 2004086032

PATIENT
  Age: 8 Year
  Sex: Female
  Weight: 24.4 kg

DRUGS (22)
  1. GABAPENTIN [Suspect]
     Indication: NEUROPATHIC PAIN
     Dosage: 750 MG (250 MG, 3 IN 1 D), ORAL
     Route: 048
     Dates: start: 20040809, end: 20040916
  2. CHLORHEXIDINE (CHLORHEXIDINE) [Concomitant]
  3. CODEINE PHOSPHATE (CODEINE PHOSPHATE) [Concomitant]
  4. LACTULOSE [Concomitant]
  5. SENNA (SENNA) [Concomitant]
  6. DICLOFENAC (DICLOFENAC) [Concomitant]
  7. GRANISETRON (GRANISETRON) [Concomitant]
  8. ACETAMINOPHEN [Concomitant]
  9. MORPHINE SULFATE [Concomitant]
  10. LORAZEPAM [Concomitant]
  11. BETHANECHOL CHLORIDE (BETHANECHOL CHLORIDE) [Concomitant]
  12. FENTANYL [Concomitant]
  13. CEFUROXINE (CEFUROXINE) [Concomitant]
  14. PROPOFOL [Concomitant]
  15. CYCLIZINE (CYCLIZINE) [Concomitant]
  16. OTHER THERAPEUTIC PRODUCTS (ALL OTHER THERAPEUTIC PRODUCTS) [Concomitant]
  17. ANTINEOPLASTIC AGENTS (ANTINEOPLASTIC AGENTS) [Concomitant]
  18. VINCRISTINE [Concomitant]
  19. CYCLOPHOSPHAMIDE [Concomitant]
  20. CARBOPLATIN [Concomitant]
  21. DACTINOMYCIN [Concomitant]
  22. ETOPOSIDE [Concomitant]

REACTIONS (3)
  - OEDEMA PERIPHERAL [None]
  - PAIN [None]
  - RADIAL NERVE PALSY [None]
